FAERS Safety Report 7033739-2 (Version None)
Quarter: 2010Q4

REPORT INFORMATION
  Report Type: 
  Country: None (occurrence: None)
  Receive Date: 20101007
  Receipt Date: 20100921
  Transmission Date: 20110411
  Serious: Yes (Other)
  Sender: FDA-Public Use
  Company Number: PHHY2010BR65890

PATIENT
  Age: 56 Year
  Sex: Male
  Weight: 92 kg

DRUGS (7)
  1. ALISKIREN [Suspect]
     Dosage: 150 MG, UNK
  2. CHLORTHALIDONE [Suspect]
     Dosage: 25 MG PER DAY
  3. HYDROCHLOROTHIAZIDE [Suspect]
     Dosage: 25 MG PER DAY
  4. ENALAPRIL MALEATE [Suspect]
     Dosage: 20 MG PER DAY
  5. AMLODIPINE [Suspect]
     Dosage: 10 MG PER DAY
  6. ATENOLOL [Suspect]
     Dosage: 50 MG PER DAY
  7. ATORVASTATIN [Suspect]
     Dosage: 20 MG PER DAY

REACTIONS (9)
  - DYSSOMNIA [None]
  - ELECTROCARDIOGRAM ABNORMAL [None]
  - LEFT ATRIAL DILATATION [None]
  - LEFT VENTRICULAR FAILURE [None]
  - SINUS RHYTHM [None]
  - SLEEP STUDY ABNORMAL [None]
  - SNORING [None]
  - SOMNOLENCE [None]
  - WEIGHT DECREASED [None]
